FAERS Safety Report 11289377 (Version 2)
Quarter: 2015Q3

REPORT INFORMATION
  Report Type: Spontaneous
  Country: US (occurrence: US)
  Receive Date: 20150721
  Receipt Date: 20150803
  Transmission Date: 20151125
  Serious: Yes (Hospitalization)
  Sender: FDA-Public Use
  Company Number: US-UCBSA-2015023106

PATIENT
  Age: 66 Year
  Sex: Male

DRUGS (3)
  1. LANTUS [Concomitant]
     Active Substance: INSULIN GLARGINE
     Indication: DIABETES MELLITUS
     Dosage: UNKNOWN DOSE DAILY
     Route: 058
  2. KEPPRA [Suspect]
     Active Substance: LEVETIRACETAM
     Indication: SEIZURE
     Dosage: UNK MG, TWO TABLETS TWICE A DAY
     Route: 048
     Dates: end: 201507
  3. NITRO [Concomitant]
     Active Substance: NITROGLYCERIN
     Indication: CHEST PAIN
     Dosage: UNK, AS NEEDED (PRN)
     Route: 060

REACTIONS (5)
  - Mood swings [Recovered/Resolved]
  - Depression [Recovered/Resolved]
  - Seizure [Recovered/Resolved]
  - Chest pain [Recovered/Resolved]
  - Personality change [Recovered/Resolved]

NARRATIVE: CASE EVENT DATE: 20141231
